FAERS Safety Report 7576794-3 (Version None)
Quarter: 2011Q2

REPORT INFORMATION
  Report Type: 
  Country: None (occurrence: None)
  Receive Date: 20110628
  Receipt Date: 20090605
  Transmission Date: 20111010
  Serious: Yes (Death, Other)
  Sender: FDA-Public Use
  Company Number: US-BAYER-200922399NA

PATIENT
  Age: 86 Year
  Sex: Female
  Weight: 84 kg

DRUGS (14)
  1. CONTRAST MEDIA [Concomitant]
     Indication: CATHETERISATION CARDIAC
     Dosage: UNK
     Dates: start: 20060403
  2. PROTAMINE SULFATE [Concomitant]
     Dosage: UNK
     Dates: start: 20060407, end: 20060407
  3. RED BLOOD CELLS [Concomitant]
     Dosage: UNK
     Dates: start: 20060407
  4. TRASYLOL [Suspect]
     Dosage: LOADING DOSE 200 ML FOLLOWED BY 50CC/HR DRIP
     Dates: start: 20060407, end: 20060407
  5. INSULIN [Concomitant]
     Dosage: UNK
     Dates: start: 20060407, end: 20060407
  6. TRASYLOL [Suspect]
     Indication: PRODUCT USED FOR UNKNOWN INDICATION
     Dosage: TEST DOSE - 1 ML
     Route: 042
     Dates: start: 20060407, end: 20060407
  7. DOBUTAMINE HCL [Concomitant]
     Dosage: UNK
     Dates: start: 20060407, end: 20060407
  8. ATENOLOL [Concomitant]
     Dosage: 25 MG, QD
     Route: 048
  9. NORVASC [Concomitant]
     Dosage: 10 MG, QD
     Route: 048
  10. ACETYLSALICYLIC ACID SRT [Concomitant]
     Dosage: 81 MG, QD
     Route: 048
  11. CLONIDINE [Concomitant]
     Dosage: 0.1 MG, BID
     Route: 048
  12. MANITOL [Concomitant]
     Dosage: UNK
     Dates: start: 20060407, end: 20060407
  13. ZANTAC [Concomitant]
     Dosage: 150 MG, QD
     Route: 048
  14. MIDAZOLAM HCL [Concomitant]
     Dosage: UNK
     Dates: start: 20060407, end: 20060407

REACTIONS (12)
  - RENAL FAILURE [None]
  - RENAL INJURY [None]
  - PAIN [None]
  - EMOTIONAL DISTRESS [None]
  - RENAL IMPAIRMENT [None]
  - INJURY [None]
  - DEATH [None]
  - FEAR [None]
  - ANHEDONIA [None]
  - STRESS [None]
  - ANXIETY [None]
  - UNEVALUABLE EVENT [None]
